FAERS Safety Report 14561507 (Version 2)
Quarter: 2019Q3

REPORT INFORMATION
  Report Type: Spontaneous
  Country: DE (occurrence: DE)
  Receive Date: 20180222
  Receipt Date: 20190819
  Transmission Date: 20191004
  Serious: Yes (Hospitalization, Disabling, Other)
  Sender: FDA-Public Use
  Company Number: DE-TORRENT-00007809

PATIENT
  Age: 59 Year
  Sex: Female
  Weight: 99 kg

DRUGS (1)
  1. LEVOFLOXACIN. [Suspect]
     Active Substance: LEVOFLOXACIN
     Indication: ANTIBIOTIC PROPHYLAXIS
     Dosage: 5 X 250MG
     Route: 048
     Dates: start: 201709

REACTIONS (33)
  - Tendon pain [Unknown]
  - Arrhythmia [Unknown]
  - Depression [Not Recovered/Not Resolved]
  - Hypersensitivity [Not Recovered/Not Resolved]
  - Small fibre neuropathy [Not Recovered/Not Resolved]
  - Fatigue [Not Recovered/Not Resolved]
  - Palpitations [Not Recovered/Not Resolved]
  - Myalgia [Not Recovered/Not Resolved]
  - Tinnitus [Not Recovered/Not Resolved]
  - Fungal infection [Not Recovered/Not Resolved]
  - Muscular weakness [Not Recovered/Not Resolved]
  - Back pain [Not Recovered/Not Resolved]
  - Restlessness [Not Recovered/Not Resolved]
  - Drug intolerance [Not Recovered/Not Resolved]
  - Panic attack [Unknown]
  - Neuropathy peripheral [Unknown]
  - Pain in extremity [Unknown]
  - Impaired work ability [Not Recovered/Not Resolved]
  - Myalgia [Unknown]
  - Tendonitis [Unknown]
  - Joint dislocation [Recovered/Resolved with Sequelae]
  - Infection susceptibility increased [Not Recovered/Not Resolved]
  - Mucosal dryness [Not Recovered/Not Resolved]
  - Tearfulness [Not Recovered/Not Resolved]
  - Gait inability [Unknown]
  - Plantar fasciitis [Not Recovered/Not Resolved]
  - Aphasia [Unknown]
  - Musculoskeletal discomfort [Not Recovered/Not Resolved]
  - Memory impairment [Not Recovered/Not Resolved]
  - Visual impairment [Not Recovered/Not Resolved]
  - Malaise [Not Recovered/Not Resolved]
  - Gait disturbance [Not Recovered/Not Resolved]
  - Food intolerance [Not Recovered/Not Resolved]

NARRATIVE: CASE EVENT DATE: 2016
